FAERS Safety Report 4409834-0 (Version None)
Quarter: 2004Q3

REPORT INFORMATION
  Report Type: 
  Country: None (occurrence: None)
  Receive Date: 20040728
  Receipt Date: 20040722
  Transmission Date: 20050211
  Serious: Yes (Hospitalization, Other)
  Sender: FDA-Public Use
  Company Number: CA-MERCK-0407CAN00108

PATIENT
  Age: 71 Year
  Sex: Female
  Weight: 78 kg

DRUGS (6)
  1. AMLODIPINE BESYLATE [Concomitant]
     Indication: HYPERTENSION
     Route: 065
     Dates: start: 20040628
  2. DILTIAZEM HYDROCHLORIDE [Suspect]
     Indication: HYPERTENSION
     Route: 048
     Dates: start: 20040623, end: 20040626
  3. HYZAAR [Suspect]
     Indication: HYPERTENSION
     Route: 048
     Dates: start: 20040526
  4. HYZAAR [Suspect]
     Indication: DIABETES MELLITUS NON-INSULIN-DEPENDENT
     Route: 048
     Dates: start: 20040526
  5. MELOXICAM [Concomitant]
     Indication: OSTEOARTHRITIS
     Route: 065
     Dates: start: 20040628
  6. NITROFURANTOIN [Concomitant]
     Indication: CYSTITIS
     Route: 065
     Dates: start: 20040703

REACTIONS (4)
  - ADVERSE DRUG REACTION [None]
  - BLOOD POTASSIUM ABNORMAL [None]
  - HAEMOGLOBIN ABNORMAL [None]
  - NODAL ARRHYTHMIA [None]
